FAERS Safety Report 23029916 (Version 3)
Quarter: 2024Q2

REPORT INFORMATION
  Report Type: Report from Study
  Country: US (occurrence: US)
  Receive Date: 20231005
  Receipt Date: 20240426
  Transmission Date: 20240715
  Serious: No
  Sender: FDA-Public Use
  Company Number: US-ABBVIE-5434403

PATIENT
  Sex: Female

DRUGS (3)
  1. SKYRIZI [Suspect]
     Active Substance: RISANKIZUMAB-RZAA
     Indication: Psoriatic arthropathy
     Dosage: MISSED DOSE OF WEEK 4? FORM STRENGTH: 150 MILLIGRAM?FREQUENCY TEXT: WEEK 4
     Route: 058
     Dates: start: 202310, end: 202310
  2. SKYRIZI [Suspect]
     Active Substance: RISANKIZUMAB-RZAA
     Indication: Psoriasis
     Dosage: , 1ST ADMINISTRATION DATE-2023?FORM STRENGTH: 150 MILLIGRAM?FREQUENCY TEXT: WEEK 12
     Route: 058
  3. SKYRIZI [Suspect]
     Active Substance: RISANKIZUMAB-RZAA
     Indication: Psoriatic arthropathy
     Dosage: FORM STRENGTH: 150 MILLIGRAM?FREQUENCY TEXT: WEEK 0
     Route: 058
     Dates: start: 20230831, end: 20230831

REACTIONS (5)
  - Pain [Unknown]
  - Psoriasis [Unknown]
  - Scratch [Unknown]
  - Therapeutic response shortened [Unknown]
  - Gait disturbance [Unknown]

NARRATIVE: CASE EVENT DATE: 20230101
